FAERS Safety Report 13674415 (Version 2)
Quarter: 2017Q3

REPORT INFORMATION
  Report Type: Spontaneous
  Country: FR (occurrence: FR)
  Receive Date: 20170621
  Receipt Date: 20170724
  Transmission Date: 20171127
  Serious: Yes (Other)
  Sender: FDA-Public Use
  Company Number: FR-BAYER-2017-117915

PATIENT
  Age: 38 Year
  Sex: Female

DRUGS (1)
  1. MIRENA [Suspect]
     Active Substance: LEVONORGESTREL
     Indication: CONTRACEPTION
     Dosage: 20 MCG/24HR, CONT
     Route: 015
     Dates: start: 20130627, end: 20170601

REACTIONS (5)
  - Breast swelling [Not Recovered/Not Resolved]
  - Back pain [Recovering/Resolving]
  - Breast pain [Not Recovered/Not Resolved]
  - Vertigo [Recovered/Resolved]
  - Uterine cervical pain [Recovering/Resolving]

NARRATIVE: CASE EVENT DATE: 201309
